FAERS Safety Report 17025294 (Version 1)
Quarter: 2019Q4

REPORT INFORMATION
  Report Type: Spontaneous
  Country: US (occurrence: US)
  Receive Date: 20191112
  Receipt Date: 20191112
  Transmission Date: 20200122
  Serious: Yes (Life-Threatening, Hospitalization)
  Sender: FDA-Public Use
  Company Number: None

PATIENT
  Age: 57 Year
  Sex: Male
  Weight: 105.75 kg

DRUGS (7)
  1. REXULTI [Concomitant]
     Active Substance: BREXPIPRAZOLE
  2. OLMESARTAN [Concomitant]
     Active Substance: OLMESARTAN
  3. VYTORIN [Concomitant]
     Active Substance: EZETIMIBE\SIMVASTATIN
  4. NEXIUM [Concomitant]
     Active Substance: ESOMEPRAZOLE MAGNESIUM
  5. LAMICTAL [Concomitant]
     Active Substance: LAMOTRIGINE
  6. CYMBALTA [Concomitant]
     Active Substance: DULOXETINE HYDROCHLORIDE
  7. OZEMPIC [Suspect]
     Active Substance: SEMAGLUTIDE
     Indication: BLOOD GLUCOSE INCREASED
     Dosage: ?          QUANTITY:1 INJECTION(S);OTHER FREQUENCY:ONCE WEEKLY;?
     Route: 058

REACTIONS (1)
  - Fournier^s gangrene [None]

NARRATIVE: CASE EVENT DATE: 20190321
